FAERS Safety Report 5274785-9 (Version None)
Quarter: 2007Q1

REPORT INFORMATION
  Report Type: 
  Country: None (occurrence: None)
  Receive Date: 20070321
  Receipt Date: 20070109
  Transmission Date: 20070707
  Serious: Yes (Other)
  Sender: FDA-Public Use
  Company Number: 232564K06USA

PATIENT
  Age: 45 Year
  Sex: Female

DRUGS (1)
  1. REBIF [Suspect]
     Indication: MULTIPLE SCLEROSIS
     Dates: start: 20040416

REACTIONS (3)
  - BLOOD CHOLESTEROL INCREASED [None]
  - BLOOD PRESSURE ABNORMAL [None]
  - RENAL FAILURE [None]
